FAERS Safety Report 26153592 (Version 1)
Quarter: 2025Q4

REPORT INFORMATION
  Report Type: Spontaneous
  Country: US (occurrence: US)
  Receive Date: 20251214
  Receipt Date: 20251214
  Transmission Date: 20260118
  Serious: Yes (Hospitalization)
  Sender: LUPIN
  Company Number: US-LUPIN PHARMACEUTICALS INC.-2025-11122

PATIENT
  Age: 11 Year
  Sex: Female

DRUGS (8)
  1. VORICONAZOLE [Suspect]
     Active Substance: VORICONAZOLE
     Indication: Disseminated coccidioidomycosis
     Dosage: UNK
     Route: 065
  2. CEFTRIAXONE [Concomitant]
     Active Substance: CEFTRIAXONE
     Indication: Evidence based treatment
     Dosage: UNK
     Route: 065
  3. CEFEPIME [Concomitant]
     Active Substance: CEFEPIME HYDROCHLORIDE
     Indication: Staphylococcal infection
     Dosage: UNK
     Route: 065
  4. CEFEPIME [Concomitant]
     Active Substance: CEFEPIME HYDROCHLORIDE
     Indication: Corynebacterium infection
  5. CEFEPIME [Concomitant]
     Active Substance: CEFEPIME HYDROCHLORIDE
     Indication: Acinetobacter infection
  6. CEFEPIME [Concomitant]
     Active Substance: CEFEPIME HYDROCHLORIDE
     Indication: Enterobacter infection
  7. AMBISOME [Concomitant]
     Active Substance: AMPHOTERICIN B
     Indication: Disseminated coccidioidomycosis
     Dosage: INITIAL DOSE NOT STATED
     Route: 065
  8. AMBISOME [Concomitant]
     Active Substance: AMPHOTERICIN B
     Dosage: RESTARTED DOSE NOT STATED
     Route: 065

REACTIONS (3)
  - Fluorosis [Recovered/Resolved]
  - Periostitis [Recovered/Resolved]
  - Bone marrow oedema [Recovered/Resolved]
